FAERS Safety Report 8683845 (Version 2)
Quarter: 2012Q4

REPORT INFORMATION
  Report Type: 
  Country: FR (occurrence: FR)
  Receive Date: 20120726
  Receipt Date: 20120913
  Transmission Date: 20130627
  Serious: Yes (Other)
  Sender: FDA-Public Use
  Company Number: FR-PFIZER INC-2012176790

PATIENT
  Age: 47 Year
  Sex: Male
  Weight: 97 kg

DRUGS (3)
  1. SUTENT [Suspect]
     Indication: RENAL CANCER METASTATIC
     Dosage: 50 mg, UNK
     Route: 048
     Dates: start: 20120312
  2. MORPHINE [Concomitant]
     Dosage: UNK
  3. OXYCONTIN [Concomitant]
     Indication: BONE PAIN
     Dosage: 40 mg, daily (in 2 intakes)
     Route: 048
     Dates: start: 20120301

REACTIONS (5)
  - Metastatic pain [Not Recovered/Not Resolved]
  - Anxiety [Not Recovered/Not Resolved]
  - Palmar-plantar erythrodysaesthesia syndrome [Recovered/Resolved]
  - Dry mouth [Not Recovered/Not Resolved]
  - Tongue dry [Not Recovered/Not Resolved]
